FAERS Safety Report 13547246 (Version 6)
Quarter: 2018Q1

REPORT INFORMATION
  Report Type: Report from Study
  Country: US (occurrence: US)
  Receive Date: 20170515
  Receipt Date: 20180319
  Transmission Date: 20180508
  Serious: Yes (Life-Threatening, Hospitalization, Other)
  Sender: FDA-Public Use
  Company Number: US-ACTELION-A-NJ2016-136608

PATIENT
  Age: 34 Year
  Sex: Male
  Weight: 140.59 kg

DRUGS (5)
  1. OPSUMIT [Suspect]
     Active Substance: MACITENTAN
     Dosage: 10 MG, QD
     Route: 048
     Dates: start: 20170421
  2. VELETRI [Suspect]
     Active Substance: EPOPROSTENOL
     Indication: PULMONARY HYPERTENSION
     Dosage: 36 NG/KG, PER MIN
     Route: 042
     Dates: start: 20140825
  3. OPSUMIT [Suspect]
     Active Substance: MACITENTAN
     Indication: PULMONARY HYPERTENSION
     Dosage: 10 MG, QD
     Route: 048
     Dates: start: 20161102, end: 20170414
  4. LASIX [Suspect]
     Active Substance: FUROSEMIDE
     Dosage: UNK
     Route: 048
     Dates: start: 20170414
  5. LASIX [Suspect]
     Active Substance: FUROSEMIDE
     Indication: PRODUCT USED FOR UNKNOWN INDICATION
     Dosage: UNK
     Route: 042

REACTIONS (25)
  - Hypoxia [Recovered/Resolved]
  - Hypercapnia [Recovered/Resolved]
  - Pain in jaw [Unknown]
  - Device leakage [Recovered/Resolved]
  - Bone pain [Unknown]
  - Device damage [Recovered/Resolved]
  - Pulmonary hypertension [Not Recovered/Not Resolved]
  - Fluid overload [Recovered/Resolved]
  - Dyspnoea exertional [Recovered/Resolved]
  - Fluid retention [Recovered/Resolved]
  - Cardiac failure [Unknown]
  - Dizziness [Unknown]
  - Device issue [Recovered/Resolved]
  - Pneumonia aspiration [Unknown]
  - Weight increased [Recovered/Resolved]
  - Complication associated with device [Unknown]
  - Right ventricular failure [Recovered/Resolved]
  - Feeling of body temperature change [Unknown]
  - Hypoaesthesia [Unknown]
  - No adverse event [Unknown]
  - Pallor [Recovering/Resolving]
  - Chest discomfort [Unknown]
  - Flushing [Unknown]
  - Night sweats [Unknown]
  - Chest pain [Unknown]

NARRATIVE: CASE EVENT DATE: 20170112
